FAERS Safety Report 14521546 (Version 2)
Quarter: 2019Q1

REPORT INFORMATION
  Report Type: Spontaneous
  Country: US (occurrence: US)
  Receive Date: 20180212
  Receipt Date: 20190215
  Transmission Date: 20190417
  Serious: No
  Sender: FDA-Public Use
  Company Number: US-AMAG PHARMACEUTICALS, INC.-AMAG201800200

PATIENT

DRUGS (5)
  1. PROAIR HFA 108 (90 BASE) MCG/ACT [Concomitant]
     Indication: ASTHMA
     Dosage: 1 - 2, Q4H
     Route: 055
     Dates: start: 20171109
  2. ONDANSETRON [Concomitant]
     Active Substance: ONDANSETRON
     Indication: PRODUCT USED FOR UNKNOWN INDICATION
     Dosage: 8 MG, TAB, TID
     Route: 065
     Dates: start: 20171127
  3. METOCLOPRAMIDE HCL [Concomitant]
     Active Substance: METOCLOPRAMIDE HYDROCHLORIDE
     Indication: PRODUCT USED FOR UNKNOWN INDICATION
     Dosage: 10 MG,TAB, QID
     Route: 065
     Dates: start: 20171109
  4. MAKENA [Suspect]
     Active Substance: HYDROXYPROGESTERONE CAPROATE
     Indication: PREMATURE DELIVERY
     Dosage: UNK
     Route: 065
     Dates: start: 20180102
  5. VITAFOL GUMMIES (PRENATAL VITAMINS) [Concomitant]
     Indication: PREGNANCY
     Dosage: 3 TABS, QD, 3.33-0.333-34.8 MG
     Route: 048
     Dates: start: 20171109

REACTIONS (4)
  - Threatened labour [Unknown]
  - Pruritus generalised [Not Recovered/Not Resolved]
  - Amniorrhoea [Unknown]
  - Rash [Not Recovered/Not Resolved]

NARRATIVE: CASE EVENT DATE: 201801
